FAERS Safety Report 5676535-0 (Version None)
Quarter: 2008Q1

REPORT INFORMATION
  Report Type: 
  Country: None (occurrence: None)
  Receive Date: 20080321
  Receipt Date: 20080321
  Transmission Date: 20080703
  Serious: Yes (Hospitalization)
  Sender: FDA-Public Use
  Company Number: None

PATIENT
  Age: 86 Year
  Sex: Female

DRUGS (10)
  1. AMIODARONE HCL [Suspect]
  2. OSCAL [Concomitant]
  3. METOPROLOL TARTRATE [Concomitant]
  4. AMLODIPINE [Concomitant]
  5. ACTONEL [Concomitant]
  6. CELEXA [Concomitant]
  7. PROTONIX [Concomitant]
  8. LEVOTHYROXINE SODIUM [Concomitant]
  9. FERROUS SULFATE TAB [Concomitant]
  10. COUMADIN [Concomitant]

REACTIONS (1)
  - PULMONARY FIBROSIS [None]
